FAERS Safety Report 9214958 (Version 3)
Quarter: 2013Q2

REPORT INFORMATION
  Report Type: Spontaneous
  Country: SI (occurrence: SI)
  Receive Date: 20130405
  Receipt Date: 20130429
  Transmission Date: 20140414
  Serious: Yes (Other)
  Sender: FDA-Public Use
  Company Number: SI-GLAXOSMITHKLINE-B0880587A

PATIENT
  Age: 52 Year
  Sex: Female
  Weight: 73 kg

DRUGS (10)
  1. LAMICTAL [Suspect]
     Indication: DEPRESSION
     Route: 048
     Dates: start: 20130307, end: 20130318
  2. MIRTAZAPINE [Concomitant]
     Dosage: 30MG PER DAY
  3. SEROQUEL [Concomitant]
     Dosage: 100MG PER DAY
  4. APAURIN [Concomitant]
     Dosage: 10MG PER DAY
  5. MONOPRIL [Concomitant]
     Dosage: 20MG PER DAY
  6. CARVEDILOL [Concomitant]
     Dosage: 50MG PER DAY
  7. ESOMEPRAZOLE [Concomitant]
     Dosage: 40MG PER DAY
  8. ZOLPIDEM [Concomitant]
     Dosage: 10MG PER DAY
  9. NAPROXEN [Concomitant]
  10. VENLAFAXINE [Concomitant]

REACTIONS (13)
  - Drug eruption [Recovered/Resolved]
  - Type IV hypersensitivity reaction [Recovered/Resolved]
  - Skin burning sensation [Recovered/Resolved]
  - Pruritus [Recovered/Resolved]
  - Paraesthesia oral [Recovered/Resolved]
  - Glossodynia [Unknown]
  - Oral discomfort [Recovered/Resolved]
  - Stomatitis [Recovered/Resolved]
  - Tongue disorder [Recovered/Resolved]
  - Swollen tongue [Recovered/Resolved]
  - Sensation of foreign body [Recovered/Resolved]
  - Rash maculo-papular [Recovered/Resolved]
  - Urticaria [Recovered/Resolved]
